FAERS Safety Report 5631040-2 (Version None)
Quarter: 2008Q1

REPORT INFORMATION
  Report Type: 
  Country: None (occurrence: None)
  Receive Date: 20080213
  Receipt Date: 20080204
  Transmission Date: 20080703
  Serious: Yes (Death)
  Sender: FDA-Public Use
  Company Number: 2008-01008

PATIENT
  Age: 33 Year
  Sex: Female

DRUGS (6)
  1. FIORICET [Suspect]
  2. DOXEPIN HCL [Suspect]
  3. NORTRIPTYLINE HYDROCHLORIDE [Suspect]
  4. BARBITURATES() [Suspect]
  5. BENZODIAZEPINE DERIVATIVES() [Suspect]
  6. OPIOIDS/OPIOID ANTAGONIST() [Suspect]

REACTIONS (1)
  - DEATH [None]
